FAERS Safety Report 15110460 (Version 12)
Quarter: 2021Q1

REPORT INFORMATION
  Report Type: Report from Study
  Country: IT (occurrence: IT)
  Receive Date: 20180705
  Receipt Date: 20210316
  Transmission Date: 20210419
  Serious: Yes (Hospitalization, Other)
  Sender: FDA-Public Use
  Company Number: PHHY2018IT023698

PATIENT
  Age: 62 Year
  Sex: Male
  Weight: 97 kg

DRUGS (17)
  1. ESCITALOPRAM [Concomitant]
     Active Substance: ESCITALOPRAM OXALATE
     Indication: DEPRESSION
     Dosage: 20 MG, UNKNOWN
     Route: 048
     Dates: start: 20170717
  2. TAFINLAR [Suspect]
     Active Substance: DABRAFENIB MESYLATE
     Dosage: 300 MG, UNKNOWN
     Route: 065
     Dates: start: 20180627, end: 20190707
  3. TAFINLAR [Suspect]
     Active Substance: DABRAFENIB MESYLATE
     Dosage: 300 DF, UNKNOWN
     Route: 065
     Dates: start: 20191213, end: 20191222
  4. TRAMETINIB [Suspect]
     Active Substance: TRAMETINIB
     Indication: METASTATIC MALIGNANT MELANOMA
     Dosage: 2 DF, UNKNOWN
     Route: 065
     Dates: start: 20180511, end: 20180622
  5. LANSOPRAZOLE. [Concomitant]
     Active Substance: LANSOPRAZOLE
     Indication: GASTRITIS PROPHYLAXIS
     Dosage: 30 DF, UNKNOWN
     Route: 048
     Dates: start: 20190225
  6. SERTRALIN [Concomitant]
     Active Substance: SERTRALINE HYDROCHLORIDE
     Dosage: 50 DF, UNKNOWN
     Route: 048
     Dates: start: 20191104
  7. TAFINLAR [Suspect]
     Active Substance: DABRAFENIB MESYLATE
     Dosage: 300 DF, UNKNOWN
     Route: 065
     Dates: start: 20190902, end: 20191202
  8. ESCITALOPRAM [Concomitant]
     Active Substance: ESCITALOPRAM OXALATE
     Dosage: 10 DF, UNKNOWN
     Route: 048
  9. SERTRALIN [Concomitant]
     Active Substance: SERTRALINE HYDROCHLORIDE
     Indication: DEPRESSION
     Dosage: 50 DF, UNKNOWN
     Route: 048
     Dates: start: 20190624, end: 20190721
  10. SERTRALIN [Concomitant]
     Active Substance: SERTRALINE HYDROCHLORIDE
     Dosage: 25 DF, UNKNOWN
     Route: 048
     Dates: start: 20190722, end: 20190818
  11. PAROXETIN [Concomitant]
     Active Substance: PAROXETINE HYDROCHLORIDE
     Indication: DEPRESSION
     Dosage: 20 DF, UNKNOWN
     Route: 048
     Dates: start: 20190429, end: 20190623
  12. TAFINLAR [Suspect]
     Active Substance: DABRAFENIB MESYLATE
     Dosage: 300 DF, UNKNOWN
     Route: 065
     Dates: start: 20190710, end: 20190819
  13. SERTRALIN [Concomitant]
     Active Substance: SERTRALINE HYDROCHLORIDE
     Dosage: 75 DF, UNKNOWN
     Route: 048
     Dates: start: 20190819, end: 20191103
  14. TAFINLAR [Suspect]
     Active Substance: DABRAFENIB MESYLATE
     Indication: METASTATIC MALIGNANT MELANOMA
     Dosage: 300 DF, UNKNOWN
     Route: 065
     Dates: start: 20180511, end: 20180622
  15. TRAMETINIB [Suspect]
     Active Substance: TRAMETINIB
     Dosage: 2 DF, UNKNOWN
     Route: 065
     Dates: start: 20180627, end: 20190707
  16. TRAMETINIB [Suspect]
     Active Substance: TRAMETINIB
     Dosage: 2 DF, UNKNOWN
     Route: 065
     Dates: start: 20190710, end: 20190819
  17. LORAZEPAM. [Concomitant]
     Active Substance: LORAZEPAM
     Indication: DEPRESSION
     Dosage: 0.5 DF, UNKNOWN
     Route: 048
     Dates: start: 20170717

REACTIONS (19)
  - Influenza [Recovered/Resolved]
  - Pyrexia [Recovered/Resolved]
  - Asthenia [Not Recovered/Not Resolved]
  - Dizziness [Not Recovered/Not Resolved]
  - Flatulence [Not Recovered/Not Resolved]
  - Fatigue [Not Recovered/Not Resolved]
  - Pyrexia [Recovered/Resolved]
  - Malaise [Recovered/Resolved]
  - Vomiting [Recovered/Resolved]
  - C-reactive protein increased [Unknown]
  - Dyspnoea [Recovered/Resolved]
  - Cough [Recovered/Resolved]
  - Dysuria [Recovered/Resolved]
  - Dysuria [Not Recovered/Not Resolved]
  - Sciatica [Not Recovered/Not Resolved]
  - Headache [Not Recovered/Not Resolved]
  - Back pain [Recovered/Resolved]
  - Chills [Recovered/Resolved]
  - Fatigue [Recovered/Resolved]

NARRATIVE: CASE EVENT DATE: 20180512
